FAERS Safety Report 5809953-8 (Version None)
Quarter: 2008Q3

REPORT INFORMATION
  Report Type: 
  Country: None (occurrence: None)
  Receive Date: 20080714
  Receipt Date: 20080714
  Transmission Date: 20090109
  Serious: Yes (Other)
  Sender: FDA-Public Use
  Company Number: None

PATIENT
  Age: 53 Year
  Sex: Female
  Weight: 107.5025 kg

DRUGS (1)
  1. CRESTOR [Suspect]
     Indication: LOW DENSITY LIPOPROTEIN INCREASED
     Dosage: 1 TABLET EVERY OTHER DAY PO
     Route: 048
     Dates: start: 20080401, end: 20080711

REACTIONS (2)
  - DRUG INEFFECTIVE [None]
  - HEADACHE [None]
